FAERS Safety Report 10257363 (Version 1)
Quarter: 2014Q2

REPORT INFORMATION
  Report Type: Spontaneous
  Country: US (occurrence: None)
  Receive Date: 20140620
  Receipt Date: 20140620
  Transmission Date: 20141212
  Serious: Yes (Other)
  Sender: FDA-Public Use
  Company Number: AUR-APL-2014-06529

PATIENT
  Age: 33 Year
  Sex: 0

DRUGS (2)
  1. TRAMADOL [Suspect]
     Indication: INFLAMMATION
  2. ALEVE [Suspect]
     Indication: INFLAMMATION

REACTIONS (4)
  - Rheumatoid arthritis [None]
  - Osteoarthritis [None]
  - Balance disorder [None]
  - Dyskinesia [None]
